FAERS Safety Report 6898762-7 (Version None)
Quarter: 2010Q3

REPORT INFORMATION
  Report Type: 
  Country: None (occurrence: None)
  Receive Date: 20100802
  Receipt Date: 20071130
  Transmission Date: 20110219
  Serious: No
  Sender: FDA-Public Use
  Company Number: US-PFIZER INC-2007076055

PATIENT
  Sex: Female
  Weight: 55.3 kg

DRUGS (6)
  1. LYRICA [Suspect]
     Indication: NEUROPATHY PERIPHERAL
     Dates: start: 20070101
  2. PROTONIX [Concomitant]
  3. ZETIA [Concomitant]
  4. LEVSIN [Concomitant]
  5. MICARDIS [Concomitant]
  6. ALL OTHER THERAPEUTIC PRODUCTS [Concomitant]
     Route: 060

REACTIONS (4)
  - DIZZINESS [None]
  - DRY MOUTH [None]
  - HYPERSOMNIA [None]
  - PAIN IN EXTREMITY [None]
